FAERS Safety Report 23777075 (Version 1)
Quarter: 2024Q2

REPORT INFORMATION
  Report Type: Spontaneous
  Country: SE (occurrence: SE)
  Receive Date: 20240424
  Receipt Date: 20240424
  Transmission Date: 20240715
  Serious: Yes (Life-Threatening, Disabling)
  Sender: FDA-Public Use
  Company Number: None

PATIENT
  Age: 33 Year
  Sex: Female
  Weight: 90 kg

DRUGS (1)
  1. OLANZAPINE [Suspect]
     Active Substance: OLANZAPINE
     Indication: Product used for unknown indication
     Dosage: 1 TABLET IN THE EVENING, OLANZAPINE ACTAVIS
     Route: 048
     Dates: start: 20230930

REACTIONS (11)
  - Suicidal ideation [Not Recovered/Not Resolved]
  - Pyrexia [Not Recovered/Not Resolved]
  - Nightmare [Not Recovered/Not Resolved]
  - Fatigue [Not Recovered/Not Resolved]
  - Aggression [Not Recovered/Not Resolved]
  - Muscle spasms [Not Recovered/Not Resolved]
  - Apathy [Not Recovered/Not Resolved]
  - Pain [Not Recovered/Not Resolved]
  - Psychotic symptom [Not Recovered/Not Resolved]
  - Sleep paralysis [Not Recovered/Not Resolved]
  - Weight increased [Not Recovered/Not Resolved]
